FAERS Safety Report 14091536 (Version 1)
Quarter: 2017Q4

REPORT INFORMATION
  Report Type: Spontaneous
  Country: FR (occurrence: FR)
  Receive Date: 20171016
  Receipt Date: 20171016
  Transmission Date: 20180321
  Serious: Yes (Life-Threatening)
  Sender: FDA-Public Use
  Company Number: FR-ROCHE-2008962

PATIENT
  Sex: Male

DRUGS (1)
  1. GAZYVARO [Suspect]
     Active Substance: OBINUTUZUMAB
     Indication: PRODUCT USED FOR UNKNOWN INDICATION
     Route: 041

REACTIONS (1)
  - Myocardial infarction [Unknown]
